FAERS Safety Report 5933851-2 (Version None)
Quarter: 2008Q4

REPORT INFORMATION
  Report Type: 
  Country: None (occurrence: None)
  Receive Date: 20081024
  Receipt Date: 20081013
  Transmission Date: 20090506
  Serious: Yes (Death, Hospitalization, Other)
  Sender: FDA-Public Use
  Company Number: 53447

PATIENT
  Age: 80 Year
  Sex: Male

DRUGS (1)
  1. FLOXURIDINE [Suspect]
     Indication: OESOPHAGEAL ADENOCARCINOMA

REACTIONS (7)
  - ABDOMINAL PAIN UPPER [None]
  - FEBRILE NEUTROPENIA [None]
  - HAEMATEMESIS [None]
  - NAUSEA [None]
  - OESOPHAGEAL PERFORATION [None]
  - OESOPHAGEAL STENT INSERTION [None]
  - PROCEDURAL COMPLICATION [None]
